FAERS Safety Report 4532004-2 (Version None)
Quarter: 2004Q4

REPORT INFORMATION
  Report Type: 
  Country: None (occurrence: None)
  Receive Date: 20041217
  Receipt Date: 20041116
  Transmission Date: 20050328
  Serious: Yes (Death)
  Sender: FDA-Public Use
  Company Number: GBWYE208617NOV04

PATIENT

DRUGS (2)
  1. GEMTUZUMAB OZOGAMICIN (GEMTUZUMAB OZOGAMICIN, INJECTION) [Suspect]
  2. CYTOSINE ARABINOSIDE (CYTARABINE, ,0) [Suspect]

REACTIONS (1)
  - KLEBSIELLA INFECTION [None]
